FAERS Safety Report 10750744 (Version 1)
Quarter: 2015Q1

REPORT INFORMATION
  Report Type: Spontaneous
  Country: US (occurrence: None)
  Receive Date: 20150128
  Receipt Date: 20150128
  Transmission Date: 20150721
  Serious: Yes (Hospitalization)
  Sender: FDA-Public Use
  Company Number: NSR_01771_2015

PATIENT
  Age: 53 Year
  Sex: Female

DRUGS (10)
  1. VITAMINS [Concomitant]
     Active Substance: VITAMINS
  2. HYDROXYZINE [Suspect]
     Active Substance: HYDROXYZINE\HYDROXYZINE HYDROCHLORIDE
     Indication: PRURITUS
     Dosage: 25 MG 1X/6 HOURS, AS NEEDED
  3. PAROXETINE HYDROCHLORIDE. [Concomitant]
     Active Substance: PAROXETINE HYDROCHLORIDE
  4. FISH OIL [Concomitant]
     Active Substance: FISH OIL
  5. HERBAL MEDICATION [Concomitant]
     Active Substance: HERBALS
  6. FAMOTIDINE. [Suspect]
     Active Substance: FAMOTIDINE
     Indication: URTICARIA
  7. HYDROCODONE [Concomitant]
     Active Substance: HYDROCODONE
  8. VERAPAMIL [Concomitant]
     Active Substance: VERAPAMIL HYDROCHLORIDE
  9. PREDNISONE. [Suspect]
     Active Substance: PREDNISONE
     Indication: URTICARIA
  10. IBUPROFEN. [Concomitant]
     Active Substance: IBUPROFEN

REACTIONS (11)
  - Disorientation [None]
  - Spinal pain [None]
  - Asthenia [None]
  - Blood pressure systolic increased [None]
  - Confusional state [None]
  - Drug interaction [None]
  - Somnolence [None]
  - Dizziness [None]
  - Mental status changes [None]
  - Irritability [None]
  - Incoherent [None]
